FAERS Safety Report 19750221 (Version 5)
Quarter: 2022Q4

REPORT INFORMATION
  Report Type: Report from Study
  Country: US (occurrence: US)
  Receive Date: 20210826
  Receipt Date: 20221105
  Transmission Date: 20230112
  Serious: Yes (Death, Other)
  Sender: FDA-Public Use
  Company Number: US-002147023-NVSC2021US192778

PATIENT
  Age: 80 Year
  Sex: Female

DRUGS (1)
  1. PIQRAY [Suspect]
     Active Substance: ALPELISIB
     Indication: Breast cancer
     Dosage: UNK
     Route: 065

REACTIONS (9)
  - Death [Fatal]
  - Stomatitis [Unknown]
  - Eating disorder [Unknown]
  - Fatigue [Unknown]
  - Pruritus [Unknown]
  - Dry skin [Unknown]
  - Blood glucose increased [Unknown]
  - Asthenia [Unknown]
  - Blood creatinine increased [Unknown]

NARRATIVE: CASE EVENT DATE: 20220919
